FAERS Safety Report 5242268-8 (Version None)
Quarter: 2007Q1

REPORT INFORMATION
  Report Type: 
  Country: None (occurrence: None)
  Receive Date: 20070216
  Receipt Date: 20070216
  Transmission Date: 20070707
  Serious: Yes (Hospitalization)
  Sender: FDA-Public Use
  Company Number: None

PATIENT
  Age: 83 Year
  Sex: Female
  Weight: 59.4212 kg

DRUGS (6)
  1. WARFARIN SODIUM [Suspect]
     Indication: CEREBROVASCULAR ACCIDENT
     Dosage: 5 MG M-W-F-2.5 MG DAILY PO
     Route: 048
     Dates: start: 20010601, end: 20070215
  2. WARFARIN SODIUM [Suspect]
     Indication: DISEASE RECURRENCE
     Dosage: 5 MG M-W-F-2.5 MG DAILY PO
     Route: 048
     Dates: start: 20010601, end: 20070215
  3. COMBIVENT INH [Concomitant]
  4. TYLENOL W/ CODEINE [Concomitant]
  5. METOPROLOL SUCCINATE [Concomitant]
  6. OMEPRAZOLE [Concomitant]

REACTIONS (1)
  - DRUG TOXICITY [None]
